FAERS Safety Report 5739704-7 (Version None)
Quarter: 2008Q2

REPORT INFORMATION
  Report Type: 
  Country: None (occurrence: None)
  Receive Date: 20080513
  Receipt Date: 20080507
  Transmission Date: 20081010
  Serious: Yes (Life-Threatening)
  Sender: FDA-Public Use
  Company Number: 2008011924

PATIENT
  Age: 70 Year
  Sex: Male

DRUGS (7)
  1. CETIRIZINE HCL [Suspect]
     Indication: RHINITIS ALLERGIC
     Dosage: 10 MG, ORAL
     Route: 048
     Dates: start: 20080313, end: 20080414
  2. ACETYLSALICYLIC ACID SRT [Concomitant]
  3. NITRENDIPINE (NITRENDIPINE) [Concomitant]
  4. ALDIOXA (ALDIOXA) [Concomitant]
  5. OMEPRAZOLE [Concomitant]
  6. PRAVASTATIN [Concomitant]
  7. TRANILAST (TRANILAST) [Concomitant]

REACTIONS (1)
  - ATRIOVENTRICULAR BLOCK COMPLETE [None]
